FAERS Safety Report 6301831-3 (Version None)
Quarter: 2009Q3

REPORT INFORMATION
  Report Type: 
  Country: None (occurrence: None)
  Receive Date: 20090807
  Receipt Date: 20090727
  Transmission Date: 20100115
  Serious: Yes (Hospitalization, Other)
  Sender: FDA-Public Use
  Company Number: US-ROCHE-646352

PATIENT
  Age: 45 Year
  Sex: Female

DRUGS (12)
  1. PEGASYS [Suspect]
     Indication: DRUG USE FOR UNKNOWN INDICATION
     Route: 065
     Dates: start: 20060101
  2. PEGASYS [Suspect]
     Dosage: THIRD COURSE, MISSED DOSE ON 24 JULY 2009, ROUTE: INJECTION
     Route: 065
     Dates: start: 20090620
  3. COPEGUS [Suspect]
     Indication: DRUG USE FOR UNKNOWN INDICATION
     Route: 065
     Dates: start: 20060101
  4. COPEGUS [Suspect]
     Route: 065
     Dates: start: 20090620
  5. XANAX [Concomitant]
  6. PLAVIX [Concomitant]
  7. SINGULAIR [Concomitant]
     Dosage: DRUG REPORTED: SINGULAR
  8. ATIVAN [Concomitant]
     Dosage: DRUG REPORTED: ATIVENT
  9. ALBUTEROL [Concomitant]
  10. ALBUTEROL [Concomitant]
  11. LORTAB [Concomitant]
  12. TYLENOL (CAPLET) [Concomitant]

REACTIONS (4)
  - ASTHMA [None]
  - DEPRESSION [None]
  - PAIN [None]
  - THROMBOSIS [None]
